FAERS Safety Report 19817923 (Version 2)
Quarter: 2022Q2

REPORT INFORMATION
  Report Type: Spontaneous
  Country: JO (occurrence: JO)
  Receive Date: 20210910
  Receipt Date: 20220602
  Transmission Date: 20220721
  Serious: Yes (Death, Life-Threatening, Other)
  Sender: FDA-Public Use
  Company Number: JO-AMGEN-JORSP2021139023

PATIENT

DRUGS (1)
  1. FILGRASTIM [Suspect]
     Active Substance: FILGRASTIM
     Indication: Prophylaxis
     Dosage: UNK
     Route: 065
     Dates: start: 200801

REACTIONS (11)
  - Burkitt^s lymphoma [Fatal]
  - Febrile neutropenia [Unknown]
  - Neutropenia [Unknown]
  - Mucosal inflammation [Unknown]
  - Thrombocytopenia [Unknown]
  - Sepsis [Fatal]
  - Toxicity to various agents [Fatal]
  - Hepatotoxicity [Unknown]
  - Nephropathy toxic [Unknown]
  - Therapy partial responder [Unknown]
  - Blood disorder [Unknown]
